FAERS Safety Report 23162724 (Version 1)
Quarter: 2023Q4

REPORT INFORMATION
  Report Type: Spontaneous
  Country: FR (occurrence: FR)
  Receive Date: 20231109
  Receipt Date: 20231109
  Transmission Date: 20240110
  Serious: Yes (Hospitalization)
  Sender: FDA-Public Use
  Company Number: FR-BoehringerIngelheim-2023-BI-266411

PATIENT
  Age: 71 Year
  Sex: Female

DRUGS (1)
  1. OFEV [Suspect]
     Active Substance: NINTEDANIB
     Indication: Fibrosis
     Route: 048

REACTIONS (4)
  - Large intestine perforation [Recovered/Resolved]
  - Hepatic cytolysis [Recovered/Resolved]
  - Diarrhoea [Unknown]
  - Enterocolitis haemorrhagic [Recovered/Resolved]
